FAERS Safety Report 6413808-8 (Version None)
Quarter: 2009Q4

REPORT INFORMATION
  Report Type: 
  Country: None (occurrence: None)
  Receive Date: 20091022
  Receipt Date: 20091022
  Transmission Date: 20100525
  Serious: No
  Sender: FDA-Public Use
  Company Number: None

PATIENT
  Sex: Female
  Weight: 47.1741 kg

DRUGS (3)
  1. TOPIRAMATE 50MG APOTEX [Suspect]
     Indication: CERVICAL SPINAL STENOSIS
     Dosage: 50MG ONE PO BID ORAL
     Route: 048
     Dates: start: 20090701, end: 20091013
  2. TOPIRAMATE 50MG APOTEX [Suspect]
     Indication: HEADACHE
     Dosage: 50MG ONE PO BID ORAL
     Route: 048
     Dates: start: 20090701, end: 20091013
  3. TOPIRAMATE 50MG APOTEX [Suspect]
     Indication: MYOSITIS
     Dosage: 50MG ONE PO BID ORAL
     Route: 048
     Dates: start: 20090701, end: 20091013

REACTIONS (3)
  - HEADACHE [None]
  - MIGRAINE [None]
  - PRODUCT SUBSTITUTION ISSUE [None]
